FAERS Safety Report 13510652 (Version 6)
Quarter: 2017Q4

REPORT INFORMATION
  Report Type: Spontaneous
  Country: CO (occurrence: CO)
  Receive Date: 20170503
  Receipt Date: 20171205
  Transmission Date: 20180320
  Serious: Yes (Hospitalization, Other)
  Sender: FDA-Public Use
  Company Number: CO-PFIZER INC-2017120625

PATIENT
  Age: 69 Year
  Sex: Female

DRUGS (3)
  1. XELJANZ [Suspect]
     Active Substance: TOFACITINIB CITRATE
     Indication: RHEUMATOID ARTHRITIS
     Dosage: 5 MG, 2X/DAY
     Route: 048
     Dates: start: 2014
  2. XELJANZ [Suspect]
     Active Substance: TOFACITINIB CITRATE
     Dosage: 5 MG, CYCLIC (EVERY 3 DAYS)
     Route: 048
     Dates: start: 201705
  3. XELJANZ [Suspect]
     Active Substance: TOFACITINIB CITRATE
     Dosage: 5 MG, DAILY
     Route: 048
     Dates: start: 201711

REACTIONS (17)
  - Gait inability [Recovered/Resolved]
  - Influenza [Unknown]
  - Ear pain [Unknown]
  - Product use issue [Unknown]
  - Dyspnoea [Not Recovered/Not Resolved]
  - Decreased immune responsiveness [Unknown]
  - Arthralgia [Not Recovered/Not Resolved]
  - Balance disorder [Not Recovered/Not Resolved]
  - Intentional product misuse [Unknown]
  - Condition aggravated [Not Recovered/Not Resolved]
  - Vertigo [Recovered/Resolved]
  - Bronchitis [Unknown]
  - Pain [Unknown]
  - Urinary tract infection [Not Recovered/Not Resolved]
  - Urinary tract disorder [Recovered/Resolved]
  - Fracture [Recovered/Resolved]
  - Malaise [Recovered/Resolved]

NARRATIVE: CASE EVENT DATE: 2016
